FAERS Safety Report 25763574 (Version 1)
Quarter: 2025Q3

REPORT INFORMATION
  Report Type: Spontaneous
  Country: US (occurrence: US)
  Receive Date: 20250905
  Receipt Date: 20250905
  Transmission Date: 20251021
  Serious: No
  Sender: DOMPE FARMACEUTICI
  Company Number: US-FARMAPROD-202410-3676

PATIENT
  Sex: Female
  Weight: 56.7 kg

DRUGS (17)
  1. OXERVATE [Suspect]
     Active Substance: CENEGERMIN-BKBJ
     Indication: Neurotrophic keratopathy
     Route: 047
     Dates: start: 20241019
  2. IVIZIA [Concomitant]
     Active Substance: POVIDONE
  3. OCUVITE EYE PLUS MULTI [Concomitant]
  4. CALCIUM 250-VIT D3 [Concomitant]
  5. VITAMINS [Concomitant]
     Active Substance: VITAMINS
  6. SYSTANE (HYPROMELLOSE 2910 (4000 MPA.S)) [Concomitant]
     Active Substance: HYPROMELLOSE 2910 (4000 MPA.S)
  7. TEARS LUBRICANT [Concomitant]
     Active Substance: GLYCERIN\HYPROMELLOSES\POLYETHYLENE GLYCOL 400
  8. XIIDRA [Concomitant]
     Active Substance: LIFITEGRAST
  9. MIEBO [Concomitant]
     Active Substance: PERFLUOROHEXYLOCTANE
  10. ARCALYST [Concomitant]
     Active Substance: RILONACEPT
  11. ELIQUIS [Concomitant]
     Active Substance: APIXABAN
  12. PLAQUENIL [Concomitant]
     Active Substance: HYDROXYCHLOROQUINE SULFATE
  13. ESOMEPRAZOLE MAGNESIUM [Concomitant]
     Active Substance: ESOMEPRAZOLE MAGNESIUM
  14. OXYCODONE HYDROCHLORIDE [Concomitant]
     Active Substance: OXYCODONE HYDROCHLORIDE
  15. ASPIRIN [Concomitant]
     Active Substance: ASPIRIN
  16. MAGNESIUM OXIDE [Concomitant]
     Active Substance: MAGNESIUM OXIDE
  17. ROSUVASTATIN CALCIUM [Concomitant]
     Active Substance: ROSUVASTATIN CALCIUM

REACTIONS (2)
  - Product administration error [Unknown]
  - Overdose [Unknown]
